FAERS Safety Report 6226478-9 (Version None)
Quarter: 2009Q2

REPORT INFORMATION
  Report Type: 
  Country: None (occurrence: None)
  Receive Date: 20090612
  Receipt Date: 20090513
  Transmission Date: 20091009
  Serious: No
  Sender: FDA-Public Use
  Company Number: US-ABBOTT-09P-163-0573186-00

PATIENT
  Sex: Male
  Weight: 79.45 kg

DRUGS (7)
  1. HUMIRA [Suspect]
     Indication: PSORIASIS
     Route: 058
     Dates: start: 20090507, end: 20090507
  2. LIPITOR [Concomitant]
     Indication: BLOOD CHOLESTEROL INCREASED
  3. LISINOPRIL [Concomitant]
     Indication: HYPERTENSION
  4. HYDROCHLOROTH [Concomitant]
     Indication: HYPERTENSION
  5. POTASSIUM CHLORIDE [Concomitant]
     Indication: DRUG USE FOR UNKNOWN INDICATION
  6. FLUTICASONE [Concomitant]
     Indication: HYPERSENSITIVITY
     Route: 045
  7. FLUTICASONE [Concomitant]
     Indication: SINUS DISORDER

REACTIONS (1)
  - GENITAL HERPES [None]
